FAERS Safety Report 13875311 (Version 2)
Quarter: 2017Q3

REPORT INFORMATION
  Report Type: Report from Study
  Country: US (occurrence: US)
  Receive Date: 20170817
  Receipt Date: 20170828
  Transmission Date: 20171127
  Serious: Yes (Hospitalization)
  Sender: FDA-Public Use
  Company Number: US-AMGEN-USACT2017086216

PATIENT
  Age: 70 Year
  Sex: Male
  Weight: 83.4 kg

DRUGS (7)
  1. IBRUTINIB [Suspect]
     Active Substance: IBRUTINIB
     Dosage: 700 MG, (DAY 1-28)
     Route: 048
     Dates: start: 20170614
  2. IBRUTINIB [Suspect]
     Active Substance: IBRUTINIB
     Indication: PLASMA CELL MYELOMA
     Dosage: 700 MG, (DAY 1-28)
     Route: 048
     Dates: start: 20161107
  3. CARFILZOMIB [Suspect]
     Active Substance: CARFILZOMIB
     Dosage: 36 MG/M2, (DAY 1,2,8,9,15,16,22)
     Route: 042
     Dates: start: 20170607
  4. ACYCLOVIR. [Concomitant]
     Active Substance: ACYCLOVIR
     Dosage: UNK
  5. CARFILZOMIB [Suspect]
     Active Substance: CARFILZOMIB
     Indication: PLASMA CELL MYELOMA
     Dosage: 36 MG/M2, (DAY 1,2,8,9,15,16)
     Route: 042
     Dates: start: 20161031
  6. DEXAMETHASONE. [Suspect]
     Active Substance: DEXAMETHASONE
     Dosage: 20 MG, (1,2,8,9,15,16,22)
     Route: 048
     Dates: start: 20170607
  7. DEXAMETHASONE. [Suspect]
     Active Substance: DEXAMETHASONE
     Indication: PLASMA CELL MYELOMA
     Dosage: 20 MG, (DAY 1,2,8,9,15,16,22)
     Route: 048
     Dates: start: 20161031

REACTIONS (1)
  - Acute haemorrhagic conjunctivitis [Recovered/Resolved]

NARRATIVE: CASE EVENT DATE: 20170529
